FAERS Safety Report 8846433 (Version 1)
Quarter: 2012Q4

REPORT INFORMATION
  Report Type: 
  Country: BE (occurrence: BE)
  Receive Date: 20121017
  Receipt Date: 20121017
  Transmission Date: 20130627
  Serious: Yes (Death, Other)
  Sender: FDA-Public Use
  Company Number: BE-ROXANE LABORATORIES, INC.-2012-RO-01994RO

PATIENT
  Age: 71 Year
  Sex: Male

DRUGS (13)
  1. AZATHIOPRINE [Suspect]
     Indication: CROHN^S DISEASE
  2. OMEPRAZOLE [Suspect]
  3. DIPYRIDAMOLE [Suspect]
  4. LISINOPRIL [Suspect]
  5. MOLSIDOMINE [Suspect]
  6. ACETYLSALICYLIC ACID [Suspect]
  7. FENOFIBRATE [Suspect]
  8. CELIPROLOL [Suspect]
  9. CETIRIZINE [Suspect]
  10. NISOLDIPINE [Suspect]
  11. CYTARABINE [Suspect]
     Indication: ACUTE MYELOID LEUKAEMIA
  12. CYTARABINE [Suspect]
  13. DAUNORUBICIN [Suspect]
     Indication: ACUTE MYELOID LEUKAEMIA

REACTIONS (8)
  - Acute myeloid leukaemia [Fatal]
  - Ear infection [Unknown]
  - Diarrhoea [Unknown]
  - Mucosal inflammation [Unknown]
  - Staphylococcal sepsis [Unknown]
  - Drug eruption [Unknown]
  - Febrile neutropenia [Unknown]
  - Clostridium difficile infection [Unknown]
